FAERS Safety Report 8430436-3 (Version None)
Quarter: 2012Q2

REPORT INFORMATION
  Report Type: 
  Country: None (occurrence: None)
  Receive Date: 20120612
  Receipt Date: 20120606
  Transmission Date: 20120825
  Serious: No
  Sender: FDA-Public Use
  Company Number: US-PFIZER INC-2012136503

PATIENT
  Age: 85 Year
  Sex: Female

DRUGS (1)
  1. ADVIL PM [Suspect]
     Indication: HEADACHE
     Dosage: UNK
     Route: 048

REACTIONS (2)
  - DRUG INTOLERANCE [None]
  - INSOMNIA [None]
